FAERS Safety Report 14077161 (Version 2)
Quarter: 2017Q4

REPORT INFORMATION
  Report Type: Spontaneous
  Country: US (occurrence: US)
  Receive Date: 20171012
  Receipt Date: 20171031
  Transmission Date: 20180321
  Serious: Yes (Hospitalization)
  Sender: FDA-Public Use
  Company Number: US-009507513-1710USA002870

PATIENT
  Age: 61 Year
  Sex: Female

DRUGS (5)
  1. FUROSEMIDE. [Suspect]
     Active Substance: FUROSEMIDE
     Route: 048
  2. RANITIDINE. [Suspect]
     Active Substance: RANITIDINE
  3. METFORMIN [Suspect]
     Active Substance: METFORMIN HYDROCHLORIDE
     Dosage: 1000 MG, QD
  4. DIGOXIN. [Suspect]
     Active Substance: DIGOXIN
  5. GLIPIZIDE XL [Suspect]
     Active Substance: GLIPIZIDE
     Dosage: 10 MG, BID

REACTIONS (4)
  - Incoherent [Recovered/Resolved]
  - Somnolence [Recovered/Resolved]
  - Confusional state [Recovered/Resolved]
  - Hypoglycaemia [Recovered/Resolved]
